FAERS Safety Report 10990199 (Version 2)
Quarter: 2015Q2

REPORT INFORMATION
  Report Type: Spontaneous
  Country: US (occurrence: US)
  Receive Date: 20150406
  Receipt Date: 20150505
  Transmission Date: 20150821
  Serious: Yes (Hospitalization, Other)
  Sender: FDA-Public Use
  Company Number: US-JNJFOC-20150319378

PATIENT
  Age: 59 Year
  Sex: Male
  Weight: 86.18 kg

DRUGS (2)
  1. STELARA [Suspect]
     Active Substance: USTEKINUMAB
     Indication: PSORIASIS
     Dosage: TOTAL INJECTIONS-3
     Route: 058
     Dates: start: 20140806, end: 20141205
  2. STELARA [Suspect]
     Active Substance: USTEKINUMAB
     Indication: PSORIASIS
     Dosage: TOTAL INJECTIONS-3
     Route: 058
     Dates: start: 20140806, end: 20141205

REACTIONS (3)
  - Central nervous system infection [Unknown]
  - Drug ineffective [Unknown]
  - Seizure [Recovered/Resolved]

NARRATIVE: CASE EVENT DATE: 201503
